FAERS Safety Report 4317721-1 (Version None)
Quarter: 2004Q1

REPORT INFORMATION
  Report Type: 
  Country: None (occurrence: None)
  Receive Date: 20040315
  Receipt Date: 20040308
  Transmission Date: 20041129
  Serious: Yes (Death)
  Sender: FDA-Public Use
  Company Number: PHEH2004US02753

PATIENT
  Age: 40 Year
  Sex: Male

DRUGS (2)
  1. MELLARIL [Suspect]
     Indication: SCHIZOPHRENIA
     Dosage: 75 MG, QD
     Route: 048
     Dates: start: 19750101
  2. PREDNISONE [Concomitant]

REACTIONS (5)
  - HEPATIC CIRRHOSIS [None]
  - HEPATITIS B [None]
  - SARCOIDOSIS [None]
  - SHOCK HYPOGLYCAEMIC [None]
  - SPLENIC RUPTURE [None]
